FAERS Safety Report 10218680 (Version 1)
Quarter: 2014Q2

REPORT INFORMATION
  Report Type: Spontaneous
  Country: US (occurrence: US)
  Receive Date: 20140605
  Receipt Date: 20140605
  Transmission Date: 20141212
  Serious: Yes (Hospitalization)
  Sender: FDA-Public Use
  Company Number: US-BAYER-2014-082304

PATIENT
  Age: 34 Year
  Sex: Female

DRUGS (14)
  1. YAZ [Suspect]
  2. BEYAZ [Suspect]
  3. GIANVI [Suspect]
  4. SULFAMETHOXAZOLE W/TRIMETHOPRIM [Concomitant]
     Dosage: UNK
     Dates: start: 20120213
  5. NAPROXEN [Concomitant]
     Dosage: UNK
     Dates: start: 20120214
  6. CETIRIZINE [Concomitant]
     Dosage: UNK
     Dates: start: 20120214
  7. ALLEGRA [Concomitant]
     Indication: HYPERSENSITIVITY
     Dosage: UNK
     Dates: start: 20120224
  8. NEXIUM [Concomitant]
     Dosage: UNK
     Dates: start: 20120225
  9. MOMETASONE FUROATE [Concomitant]
     Dosage: UNK
     Dates: start: 20120412
  10. SUMATRIPTAN SUCCINATE [Concomitant]
     Dosage: UNK
     Dates: start: 20120412, end: 20120423
  11. BUTALBITAL, ACETAMINOPHEN + CAFFEINE [Concomitant]
     Dosage: UNK
     Dates: start: 20120419
  12. HYDROCHLOROTHIAZID [Concomitant]
     Dosage: UNK
     Dates: start: 20120419
  13. IMITREX [Concomitant]
     Indication: HEADACHE
  14. FERROUS SULFATE [Concomitant]

REACTIONS (1)
  - Ischaemic stroke [None]
